FAERS Safety Report 9387096 (Version 2)
Quarter: 2013Q3

REPORT INFORMATION
  Report Type: Spontaneous
  Country: IT (occurrence: IT)
  Receive Date: 20130708
  Receipt Date: 20130822
  Transmission Date: 20140515
  Serious: Yes (Hospitalization)
  Sender: FDA-Public Use
  Company Number: PHHY2013IT071111

PATIENT
  Age: 83 Year
  Sex: Female

DRUGS (7)
  1. LEVOFLOXACIN [Suspect]
     Indication: COUGH
     Dosage: 1 U, QD
     Route: 048
     Dates: start: 20130415, end: 20130419
  2. RATACAND [Suspect]
     Dosage: 1 U, QD
     Route: 048
     Dates: start: 20120421, end: 20130420
  3. CEFIXORAL [Suspect]
     Indication: COUGH
     Dosage: 400 MG, QD
     Route: 048
     Dates: start: 20130415, end: 20130419
  4. LASIX [Suspect]
     Dosage: 25 MG, QD
     Route: 048
     Dates: start: 20120421, end: 20130420
  5. CANRENONE [Concomitant]
  6. LANSOPRAZOLE [Concomitant]
  7. ACETYLSALICYLIC ACID [Concomitant]

REACTIONS (4)
  - Asthenia [Not Recovered/Not Resolved]
  - Vomiting [Not Recovered/Not Resolved]
  - Nausea [Not Recovered/Not Resolved]
  - Renal failure acute [Not Recovered/Not Resolved]
